FAERS Safety Report 22214539 (Version 1)
Quarter: 2023Q2

REPORT INFORMATION
  Report Type: Spontaneous
  Country: US (occurrence: US)
  Receive Date: 20230415
  Receipt Date: 20230415
  Transmission Date: 20230721
  Serious: No
  Sender: FDA-Public Use
  Company Number: US-drreddys-SPO/USA/23/0162948

PATIENT
  Age: 38 Year
  Sex: Female

DRUGS (2)
  1. ACCUTANE [Suspect]
     Active Substance: ISOTRETINOIN
     Indication: Product used for unknown indication
     Dosage: RMA ISSUE DATE: 21 OCTOBER 2022 03:34:03 PM, 17 NOVEMBER 2022 02:01:49 PM, 17 JANUARY 2023 08:46:40
  2. ACCUTANE [Suspect]
     Active Substance: ISOTRETINOIN
     Dosage: RMA ISSUE DATE: 16 DECEMBER 2022 10:29:47 AM, 17 FEBRUARY 2023 02:18:59 PM

REACTIONS (1)
  - Treatment noncompliance [Unknown]
